FAERS Safety Report 23794244 (Version 7)
Quarter: 2024Q3

REPORT INFORMATION
  Report Type: Spontaneous
  Country: US (occurrence: US)
  Receive Date: 20240429
  Receipt Date: 20240918
  Transmission Date: 20241016
  Serious: No
  Sender: PFIZER
  Company Number: US-PFIZER INC-202400091113

PATIENT
  Age: 10 Year
  Sex: Male

DRUGS (1)
  1. GENOTROPIN [Suspect]
     Active Substance: SOMATROPIN
     Dosage: UNK

REACTIONS (5)
  - Device delivery system issue [Unknown]
  - Device mechanical issue [Unknown]
  - Device information output issue [Unknown]
  - Incorrect dose administered by device [Unknown]
  - Drug dose omission by device [Unknown]
